FAERS Safety Report 8069353-X (Version None)
Quarter: 2012Q1

REPORT INFORMATION
  Report Type: 
  Country: None (occurrence: None)
  Receive Date: 20120118
  Receipt Date: 20120109
  Transmission Date: 20120608
  Serious: Yes (Death)
  Sender: FDA-Public Use
  Company Number: JPI-P-014814

PATIENT
  Age: 64 Year
  Sex: Female

DRUGS (5)
  1. XYREM [Suspect]
     Indication: INSOMNIA
     Dosage: SEE IMAGE ORAL
     Route: 048
     Dates: start: 20050729, end: 20051001
  2. XYREM [Suspect]
     Indication: INSOMNIA
     Dosage: SEE IMAGE ORAL
     Route: 048
     Dates: start: 20051006, end: 20060301
  3. XYREM [Suspect]
     Indication: INSOMNIA
     Dosage: SEE IMAGE ORAL
     Route: 048
     Dates: start: 20061009, end: 20070101
  4. XYREM [Suspect]
     Indication: INSOMNIA
     Dosage: SEE IMAGE ORAL
     Route: 048
     Dates: start: 20070510, end: 20070703
  5. XYREM [Suspect]
     Indication: INSOMNIA
     Dosage: SEE IMAGE ORAL
     Route: 048
     Dates: start: 20070110, end: 20070401

REACTIONS (1)
  - DUODENAL ULCER HAEMORRHAGE [None]
